FAERS Safety Report 6129826-3 (Version None)
Quarter: 2009Q1

REPORT INFORMATION
  Report Type: 
  Country: None (occurrence: None)
  Receive Date: 20090324
  Receipt Date: 20090324
  Transmission Date: 20090719
  Serious: Yes (Hospitalization, Other)
  Sender: FDA-Public Use
  Company Number: PHHO2003CH10175

PATIENT
  Sex: Female
  Weight: 74 kg

DRUGS (1)
  1. CGS 20267 T30748+ [Suspect]
     Indication: BREAST CANCER
     Dosage: 2.5 MG, QD
     Route: 048
     Dates: start: 20030527

REACTIONS (5)
  - AMNESIA [None]
  - CEREBRAL INFARCTION [None]
  - LEUKOENCEPHALOPATHY [None]
  - PARESIS [None]
  - TRANSIENT ISCHAEMIC ATTACK [None]
